FAERS Safety Report 26165535 (Version 2)
Quarter: 2025Q4

REPORT INFORMATION
  Report Type: Spontaneous
  Country: US (occurrence: US)
  Receive Date: 20251216
  Receipt Date: 20251229
  Transmission Date: 20260117
  Serious: No
  Sender: VERTEX
  Company Number: US-VERTEX PHARMACEUTICALS-2025-021213

PATIENT
  Age: 13 Year
  Sex: Male

DRUGS (1)
  1. CASGEVY [Suspect]
     Active Substance: EXAGAMGLOGENE AUTOTEMCEL
     Indication: Sickle cell disease
     Dosage: UNKNOWN DOSAGE REGIMEN

REACTIONS (4)
  - Chest discomfort [Recovered/Resolved]
  - Throat irritation [Recovered/Resolved]
  - Cough [Recovered/Resolved]
  - Drug delivery system malfunction [Recovered/Resolved]

NARRATIVE: CASE EVENT DATE: 20251209
